FAERS Safety Report 5275874-5 (Version None)
Quarter: 2007Q1

REPORT INFORMATION
  Report Type: 
  Country: None (occurrence: None)
  Receive Date: 20061213
  Receipt Date: 20041028
  Transmission Date: 20070707
  Serious: No
  Sender: FDA-Public Use
  Company Number: 2004UW22418

PATIENT
  Age: 48 Year
  Sex: Female

DRUGS (5)
  1. SEROQUEL [Suspect]
     Indication: BIPOLAR DISORDER
     Dosage: 900 MG DAILY PO
     Route: 048
  2. TRAZODONE HCL [Concomitant]
  3. LEXAPRO [Concomitant]
  4. LITHIUM CARBONATE [Concomitant]
  5. CLONAZEPAM [Concomitant]

REACTIONS (1)
  - DIABETES MELLITUS [None]
